FAERS Safety Report 15862996 (Version 1)
Quarter: 2019Q1

REPORT INFORMATION
  Report Type: Spontaneous
  Country: AR (occurrence: AR)
  Receive Date: 20190124
  Receipt Date: 20190124
  Transmission Date: 20190417
  Serious: Yes (Other)
  Sender: FDA-Public Use
  Company Number: AR-PFIZER INC-2019031444

PATIENT
  Age: 64 Year
  Sex: Female

DRUGS (1)
  1. INLYTA [Suspect]
     Active Substance: AXITINIB
     Indication: RENAL CANCER
     Dosage: 5 MG, TWICE PER DAY
     Dates: start: 20181205, end: 20190101

REACTIONS (6)
  - Delirium [Recovered/Resolved]
  - Diarrhoea [Recovered/Resolved]
  - Functional gastrointestinal disorder [Recovered/Resolved]
  - Gait inability [Recovered/Resolved]
  - Anaemia [Recovered/Resolved]
  - Malaise [Recovered/Resolved]

NARRATIVE: CASE EVENT DATE: 20190101
